FAERS Safety Report 8927302 (Version 2)
Quarter: 2012Q4

REPORT INFORMATION
  Report Type: 
  Country: US (occurrence: US)
  Receive Date: 20121127
  Receipt Date: 20121204
  Transmission Date: 20130627
  Serious: Yes (Life-Threatening, Hospitalization, Other)
  Sender: FDA-Public Use
  Company Number: PHEH2012US022222

PATIENT
  Sex: Male
  Weight: 72.6 kg

DRUGS (4)
  1. GILENYA [Suspect]
     Indication: MULTIPLE SCLEROSIS
     Dosage: 0.5 mg, QD
     Route: 048
     Dates: start: 20120913
  2. LIPITOR [Concomitant]
     Route: 048
  3. ZOLOFT [Concomitant]
     Route: 048
  4. MULTIVITAMINS [Concomitant]
     Route: 048

REACTIONS (6)
  - Urosepsis [Recovered/Resolved]
  - Urinary tract infection [Unknown]
  - Septic shock [Unknown]
  - Pneumonia aspiration [Unknown]
  - Quadriplegia [Unknown]
  - Dysphagia [Unknown]
